FAERS Safety Report 8924317 (Version 1)
Quarter: 2012Q4

REPORT INFORMATION
  Report Type: 
  Country: GB (occurrence: GB)
  Receive Date: 20121126
  Receipt Date: 20121126
  Transmission Date: 20130627
  Serious: Yes (Other)
  Sender: FDA-Public Use
  Company Number: GB-GLAXOSMITHKLINE-B0845697A

PATIENT
  Age: 46 Year
  Sex: Female

DRUGS (1)
  1. SEROXAT [Suspect]
     Indication: ANXIETY
     Route: 065
     Dates: start: 1997

REACTIONS (12)
  - Depressed level of consciousness [Not Recovered/Not Resolved]
  - Abnormal behaviour [Not Recovered/Not Resolved]
  - Mood swings [Not Recovered/Not Resolved]
  - Depression [Not Recovered/Not Resolved]
  - Mania [Not Recovered/Not Resolved]
  - Feeling abnormal [Not Recovered/Not Resolved]
  - Anger [Not Recovered/Not Resolved]
  - Palpitations [Not Recovered/Not Resolved]
  - Pain [Not Recovered/Not Resolved]
  - Performance status decreased [Not Recovered/Not Resolved]
  - Tremor [Not Recovered/Not Resolved]
  - Dependence [Not Recovered/Not Resolved]
